FAERS Safety Report 24156068 (Version 2)
Quarter: 2024Q3

REPORT INFORMATION
  Report Type: Spontaneous
  Country: US (occurrence: US)
  Receive Date: 20240731
  Receipt Date: 20240902
  Transmission Date: 20241017
  Serious: No
  Sender: AMGEN
  Company Number: US-AMGEN-USASP2024151705

PATIENT
  Age: 77 Year
  Sex: Female

DRUGS (1)
  1. REPATHA [Suspect]
     Active Substance: EVOLOCUMAB
     Indication: Hyperlipidaemia
     Dosage: 140 MILLIGRAM, Q2WK (TWICE A MONTH)
     Route: 058
     Dates: start: 20211216

REACTIONS (3)
  - Product storage error [Unknown]
  - Intercepted product administration error [Unknown]
  - Illness [Unknown]

NARRATIVE: CASE EVENT DATE: 20240701
